FAERS Safety Report 8200484-7 (Version None)
Quarter: 2012Q1

REPORT INFORMATION
  Report Type: 
  Country: None (occurrence: None)
  Receive Date: 20120306
  Receipt Date: 20120222
  Transmission Date: 20120608
  Serious: Yes (Other)
  Sender: FDA-Public Use
  Company Number: 2012P1007845

PATIENT
  Age: 67 Year
  Sex: Female
  Weight: 81.6475 kg

DRUGS (1)
  1. DEXEDRINE [Suspect]
     Indication: NARCOLEPSY
     Dosage: 15 MG;BID
     Dates: start: 20120201

REACTIONS (3)
  - CONDITION AGGRAVATED [None]
  - PARADOXICAL DRUG REACTION [None]
  - NARCOLEPSY [None]
